FAERS Safety Report 19720261 (Version 4)
Quarter: 2022Q1

REPORT INFORMATION
  Report Type: Spontaneous
  Country: JP (occurrence: JP)
  Receive Date: 20210818
  Receipt Date: 20220330
  Transmission Date: 20220423
  Serious: Yes (Hospitalization, Other)
  Sender: FDA-Public Use
  Company Number: JP-BRISTOL-MYERS SQUIBB COMPANY-BMS-2021-080931

PATIENT
  Age: 57 Year
  Sex: Male
  Weight: 48 kg

DRUGS (4)
  1. YERVOY [Suspect]
     Active Substance: IPILIMUMAB
     Indication: Pleural mesothelioma malignant
     Dosage: UNKNOWN
     Dates: start: 20210705
  2. OPDIVO [Suspect]
     Active Substance: NIVOLUMAB
     Indication: Pleural mesothelioma malignant
     Dosage: UNKNOWN
     Dates: start: 201712
  3. OPDIVO [Suspect]
     Active Substance: NIVOLUMAB
     Dosage: UNKNOWN
     Dates: start: 202002
  4. OPDIVO [Suspect]
     Active Substance: NIVOLUMAB
     Dosage: UNKNOWN
     Dates: start: 20210705

REACTIONS (2)
  - C-reactive protein increased [Unknown]
  - Enterocolitis [Unknown]

NARRATIVE: CASE EVENT DATE: 20210301
